FAERS Safety Report 25174430 (Version 1)
Quarter: 2025Q2

REPORT INFORMATION
  Report Type: Report from Study
  Country: US (occurrence: US)
  Receive Date: 20250408
  Receipt Date: 20250408
  Transmission Date: 20250716
  Serious: Yes (Death, Hospitalization)
  Sender: PFIZER
  Company Number: US-AMGEN-US026224

PATIENT
  Age: 70 Year
  Sex: Female

DRUGS (5)
  1. CYTARABINE [Suspect]
     Active Substance: CYTARABINE
     Route: 037
     Dates: start: 20021015, end: 20021112
  2. CYTARABINE [Suspect]
     Active Substance: CYTARABINE
     Dosage: UNK UNK, 2X/DAY (3 DOSES OF HIGH-DOSE CYTARABINE 3 G/M2 IV EVERY 12 HOURS)
     Route: 042
     Dates: start: 200211, end: 200211
  3. NEUPOGEN [Suspect]
     Active Substance: FILGRASTIM
     Indication: Chemotherapy
     Dosage: 300 UG, 1X/DAY
     Route: 058
     Dates: start: 20021121, end: 20021122
  4. BACTROBAN [Suspect]
     Active Substance: MUPIROCIN CALCIUM
  5. DECADRON [Concomitant]
     Active Substance: DEXAMETHASONE
     Dates: start: 20021122

REACTIONS (3)
  - Stevens-Johnson syndrome [Fatal]
  - Sepsis [Fatal]
  - Pancytopenia [Fatal]

NARRATIVE: CASE EVENT DATE: 20021101
